FAERS Safety Report 4874171-7 (Version None)
Quarter: 2006Q1

REPORT INFORMATION
  Report Type: 
  Country: None (occurrence: None)
  Receive Date: 20060106
  Receipt Date: 20051229
  Transmission Date: 20060701
  Serious: Yes (Other)
  Sender: FDA-Public Use
  Company Number: US-JNJFOC-20060100190

PATIENT
  Age: 65 Year
  Sex: Male

DRUGS (2)
  1. TYLENOL 8 HOUR EXTENDED RELEASE [Suspect]
     Route: 048
  2. TYLENOL 8 HOUR EXTENDED RELEASE [Suspect]
     Indication: ARTHRITIS
     Route: 048

REACTIONS (3)
  - DEAFNESS [None]
  - HEARING IMPAIRED [None]
  - TINNITUS [None]
